FAERS Safety Report 12419119 (Version 1)
Quarter: 2016Q2

REPORT INFORMATION
  Report Type: Spontaneous
  Country: US (occurrence: None)
  Receive Date: 20160527
  Receipt Date: 20160527
  Transmission Date: 20160815
  Serious: Yes (Disabling)
  Sender: FDA-Public Use
  Company Number: None

PATIENT
  Sex: Female
  Weight: 81.65 kg

DRUGS (3)
  1. VITAMIN B12 [Concomitant]
     Active Substance: CYANOCOBALAMIN
  2. SYNTHROID [Concomitant]
     Active Substance: LEVOTHYROXINE SODIUM
  3. TRANSDERM SCOP [Suspect]
     Active Substance: SCOPOLAMINE
     Indication: PROPHYLAXIS AGAINST MOTION SICKNESS
     Dosage: 5 PATCH(ES) EVERY 3 DAYS APPLIED TO A SURFACE, USUALLY THE SKIN
     Route: 061
     Dates: start: 20160506, end: 20160520

REACTIONS (5)
  - Decreased activity [None]
  - Nausea [None]
  - Constipation [None]
  - Asthenia [None]
  - Dizziness [None]
